FAERS Safety Report 24587519 (Version 2)
Quarter: 2024Q4

REPORT INFORMATION
  Report Type: Spontaneous
  Country: US (occurrence: US)
  Receive Date: 20241107
  Receipt Date: 20241213
  Transmission Date: 20250114
  Serious: Yes (Other)
  Sender: GLENMARK
  Company Number: US-GLENMARK PHARMACEUTICALS-2024GMK093361

PATIENT

DRUGS (1)
  1. LITHIUM CARBONATE [Suspect]
     Active Substance: LITHIUM CARBONATE
     Indication: Mental disorder
     Dosage: UNK
     Route: 065

REACTIONS (8)
  - Psychotic symptom [Unknown]
  - Product storage error [Unknown]
  - Product use in unapproved indication [Unknown]
  - Product with quality issue administered [Unknown]
  - Product substitution issue [Unknown]
  - Product physical issue [Unknown]
  - Therapeutic response changed [Unknown]
  - Product container seal issue [Unknown]

NARRATIVE: CASE EVENT DATE: 20240507
